FAERS Safety Report 15340460 (Version 2)
Quarter: 2018Q3

REPORT INFORMATION
  Report Type: Not Available
  Country: US (occurrence: US)
  Receive Date: 20180831
  Receipt Date: 20180919
  Transmission Date: 20181010
  Serious: Yes (Hospitalization)
  Sender: FDA-Public Use
  Company Number: US-NEUROCRINE BIOSCIENCES INC.-2018NBI02593

PATIENT
  Sex: Male

DRUGS (14)
  1. COGENTIN [Concomitant]
     Active Substance: BENZTROPINE MESYLATE
  2. ROPINEROLE [Concomitant]
     Active Substance: ROPINIROLE
  3. VALERIAN ROOT [Concomitant]
     Active Substance: VALERIAN
  4. BACLOFEN. [Concomitant]
     Active Substance: BACLOFEN
  5. LAMICTAL [Concomitant]
     Active Substance: LAMOTRIGINE
  6. MELATONIN [Concomitant]
     Active Substance: MELATONIN
  7. TOPAMAX [Concomitant]
     Active Substance: TOPIRAMATE
  8. PHENERGAN [Concomitant]
     Active Substance: PROMETHAZINE HYDROCHLORIDE
  9. TYLENOL WITH CODEINE [Concomitant]
     Active Substance: ACETAMINOPHEN\CODEINE PHOSPHATE
  10. INGREZZA [Suspect]
     Active Substance: VALBENAZINE
     Indication: TOURETTE^S DISORDER
     Route: 048
     Dates: start: 20171016, end: 20180819
  11. AMANTADINE. [Concomitant]
     Active Substance: AMANTADINE HYDROCHLORIDE
  12. NUCYNTA [Concomitant]
     Active Substance: TAPENTADOL HYDROCHLORIDE
  13. INGREZZA [Suspect]
     Active Substance: VALBENAZINE
     Indication: TIC
     Route: 048
     Dates: start: 20180825
  14. PROAIR HFA [Concomitant]
     Active Substance: ALBUTEROL SULFATE

REACTIONS (2)
  - Staphylococcal infection [Recovering/Resolving]
  - Off label use [Unknown]

NARRATIVE: CASE EVENT DATE: 2018
